FAERS Safety Report 23471773 (Version 3)
Quarter: 2024Q1

REPORT INFORMATION
  Report Type: Spontaneous
  Country: FR (occurrence: FR)
  Receive Date: 20240202
  Receipt Date: 20240226
  Transmission Date: 20240409
  Serious: Yes (Hospitalization)
  Sender: FDA-Public Use
  Company Number: FR-TAKEDA-2024TUS008803

PATIENT
  Sex: Female

DRUGS (1)
  1. VONICOG ALFA [Suspect]
     Active Substance: VONICOG ALFA
     Indication: Von Willebrand^s disease
     Dosage: 1300 INTERNATIONAL UNIT
     Route: 042

REACTIONS (7)
  - Pregnancy [Recovered/Resolved]
  - Product contamination [Unknown]
  - Product container issue [Unknown]
  - Inappropriate schedule of product administration [Unknown]
  - Intercepted product administration error [Unknown]
  - Product dose omission issue [Unknown]
  - Incorrect dose administered [Unknown]
